FAERS Safety Report 6041216-0 (Version None)
Quarter: 2009Q1

REPORT INFORMATION
  Report Type: 
  Country: None (occurrence: None)
  Receive Date: 20090116
  Receipt Date: 20080917
  Transmission Date: 20090719
  Serious: No
  Sender: FDA-Public Use
  Company Number: US-BRISTOL-MYERS SQUIBB COMPANY-14339063

PATIENT
  Age: 27 Year
  Sex: Female

DRUGS (4)
  1. ABILIFY [Suspect]
     Indication: BIPOLAR DISORDER
     Dosage: STARTED WITH 15MG/D AND THEN INCREASED TO 30MG/D. ON 23JUL08 STARTED TAPERING DOWN AND DISCONTINUED
     Dates: start: 20070801
  2. AMBIEN [Concomitant]
  3. STRATTERA [Concomitant]
  4. TRAZODONE HCL [Concomitant]

REACTIONS (1)
  - BLOOD GLUCOSE INCREASED [None]
